FAERS Safety Report 19232810 (Version 1)
Quarter: 2021Q2

REPORT INFORMATION
  Report Type: Spontaneous
  Country: US (occurrence: US)
  Receive Date: 20210507
  Receipt Date: 20210507
  Transmission Date: 20210717
  Serious: Yes (Hospitalization, Other)
  Sender: FDA-Public Use
  Company Number: US-ROCHE-2821693

PATIENT
  Age: 68 Year
  Sex: Male

DRUGS (14)
  1. LONSURF [Suspect]
     Active Substance: TIPIRACIL HYDROCHLORIDE\TRIFLURIDINE
     Indication: RECTAL CANCER
     Route: 048
     Dates: start: 20200427, end: 20210128
  2. NOVOLOG [Concomitant]
     Active Substance: INSULIN ASPART
  3. COMPAZINE [Concomitant]
     Active Substance: PROCHLORPERAZINE MALEATE
  4. TYLENOL [Concomitant]
     Active Substance: ACETAMINOPHEN
  5. AVASTIN [Suspect]
     Active Substance: BEVACIZUMAB
     Indication: PRODUCT USED FOR UNKNOWN INDICATION
     Route: 065
  6. ATORVASTATIN [Concomitant]
     Active Substance: ATORVASTATIN
  7. CLARITIN [Concomitant]
     Active Substance: LORATADINE
  8. LOSARTAN. [Concomitant]
     Active Substance: LOSARTAN
  9. METOPROLOL TARTRATE. [Concomitant]
     Active Substance: METOPROLOL TARTRATE
  10. MVASI [Suspect]
     Active Substance: BEVACIZUMAB-AWWB
     Indication: PRODUCT USED FOR UNKNOWN INDICATION
     Route: 065
  11. IMODIUM [Concomitant]
     Active Substance: LOPERAMIDE HYDROCHLORIDE
  12. LANTUS [Concomitant]
     Active Substance: INSULIN GLARGINE
  13. CLARITIN [Concomitant]
     Active Substance: LORATADINE
  14. ZOFRAN [Concomitant]
     Active Substance: ONDANSETRON HYDROCHLORIDE

REACTIONS (4)
  - Neutropenia [Unknown]
  - Abdominal pain [Unknown]
  - SARS-CoV-2 test positive [Unknown]
  - Fatigue [Recovered/Resolved]

NARRATIVE: CASE EVENT DATE: 20201207
